FAERS Safety Report 10151214 (Version 1)
Quarter: 2014Q2

REPORT INFORMATION
  Report Type: Spontaneous
  Country: US (occurrence: US)
  Receive Date: 20140504
  Receipt Date: 20140504
  Transmission Date: 20141212
  Serious: No
  Sender: FDA-Public Use
  Company Number: US-009507513-1405USA001677

PATIENT
  Sex: Male

DRUGS (1)
  1. MIRALAX [Suspect]
     Indication: PRODUCT USED FOR UNKNOWN INDICATION
     Dosage: EVERYDAY
     Route: 048
     Dates: start: 2008

REACTIONS (2)
  - Inappropriate schedule of drug administration [Unknown]
  - Off label use [Unknown]
